FAERS Safety Report 6058959-5 (Version None)
Quarter: 2009Q1

REPORT INFORMATION
  Report Type: 
  Country: None (occurrence: None)
  Receive Date: 20090130
  Receipt Date: 20090123
  Transmission Date: 20090719
  Serious: Yes (Death, Hospitalization)
  Sender: FDA-Public Use
  Company Number: A0753732A

PATIENT
  Age: 65 Year
  Sex: Male
  Weight: 159.1 kg

DRUGS (10)
  1. AVANDIA [Suspect]
     Dosage: 4MG PER DAY
     Route: 048
     Dates: start: 20020101, end: 20060901
  2. GLYBURIDE [Concomitant]
  3. ATENOLOL [Concomitant]
  4. NASACORT [Concomitant]
  5. INDAPAMIDE [Concomitant]
  6. ZOCOR [Concomitant]
  7. NORVASC [Concomitant]
  8. ALTACE [Concomitant]
  9. FLOVENT [Concomitant]
  10. THEOPHYLLINE [Concomitant]

REACTIONS (3)
  - DEATH [None]
  - MYOCARDIAL INFARCTION [None]
  - SUDDEN CARDIAC DEATH [None]
